FAERS Safety Report 9251477 (Version 1)
Quarter: 2013Q1

REPORT INFORMATION
  Report Type: Spontaneous
  Country: US (occurrence: None)
  Receive Date: 20130305
  Receipt Date: 20130305
  Transmission Date: 20140127
  Serious: Yes (Hospitalization)
  Sender: FDA-Public Use
  Company Number: 163-21880-12082049

PATIENT
  Age: 82 Year
  Sex: Female
  Weight: 76.2 kg

DRUGS (2)
  1. REVLIMID [Suspect]
     Indication: PLASMA CELL MYELOMA
     Dosage: 1 IN 1 D
     Route: 048
     Dates: start: 20120417, end: 201205
  2. ZOMETA (ZOLEDRONIC ACID) [Concomitant]
     Route: 042
     Dates: start: 20120417, end: 20120417

REACTIONS (3)
  - Hypocalcaemia [None]
  - Tremor [None]
  - Oedema [None]
